FAERS Safety Report 9022187 (Version 4)
Quarter: 2013Q1

REPORT INFORMATION
  Report Type: Spontaneous
  Country: JP (occurrence: JP)
  Receive Date: 20130118
  Receipt Date: 20130304
  Transmission Date: 20140127
  Serious: Yes (Life-Threatening, Hospitalization)
  Sender: FDA-Public Use
  Company Number: JP-009507513-1301JPN008210

PATIENT
  Age: 43 Year
  Sex: Female
  Weight: 62 kg

DRUGS (7)
  1. PEGINTRON [Suspect]
     Indication: CHRONIC HEPATITIS C
     Dosage: 70-50 MICROGRAM, DIVIDED DOSE FREQUENCY U
     Route: 058
     Dates: start: 20121001, end: 20121204
  2. REBETOL [Suspect]
     Indication: CHRONIC HEPATITIS C
     Dosage: 600 MG, QD
     Route: 048
     Dates: start: 20121001, end: 20121211
  3. LIPITOR [Concomitant]
     Dosage: 5 MG, QD
     Route: 048
     Dates: end: 20121211
  4. DEPAS [Concomitant]
     Dosage: 0.5 MG, QD
     Route: 048
     Dates: end: 20121211
  5. ROZEREM [Concomitant]
     Dosage: 8 MG, QD
     Route: 048
     Dates: end: 20121211
  6. NOVORAPID [Concomitant]
     Dosage: 27 UNIT PER KG, ONCE
     Route: 051
     Dates: end: 20121211
  7. LEVEMIR [Concomitant]
     Dosage: 24 UNIT PER KG, ONCE
     Route: 051
     Dates: end: 20121211

REACTIONS (2)
  - Muscular weakness [Unknown]
  - Guillain-Barre syndrome [Recovering/Resolving]
